FAERS Safety Report 9696812 (Version 1)
Quarter: 2013Q4

REPORT INFORMATION
  Report Type: Report from Study
  Country: US (occurrence: US)
  Receive Date: 20131119
  Receipt Date: 20131119
  Transmission Date: 20140711
  Serious: Yes (Hospitalization)
  Sender: FDA-Public Use
  Company Number: PHEH2013US023833

PATIENT
  Sex: Female

DRUGS (12)
  1. TOBI [Suspect]
     Indication: INFECTIVE PULMONARY EXACERBATION OF CYSTIC FIBROSIS
     Dosage: 300 MG, BID
     Dates: end: 201310
  2. TOBI [Suspect]
     Indication: INFECTIVE EXACERBATION OF BRONCHIECTASIS
  3. VANCOMYCIN HYDROCHLORIDE [Suspect]
     Dosage: UNK UKN, UNK
     Route: 042
  4. PULMOZYME [Concomitant]
     Dosage: UNK UKN, UNK
  5. HYPERTONIC SALINE SOLUTION [Concomitant]
     Dosage: UNK UKN, UNK
  6. SYMBICORT [Concomitant]
     Dosage: UNK UKN, UNK
  7. NASONEX [Concomitant]
     Dosage: UNK UKN, UNK
  8. ZYRTEC [Concomitant]
     Dosage: UNK UKN, UNK
  9. PRILOSEC [Concomitant]
     Dosage: UNK UKN, UNK
  10. MULTIVITAMIN//VITAMINS NOS [Concomitant]
     Dosage: UNK UKN, UNK
  11. CREON [Concomitant]
     Dosage: UNK UKN, UNK
  12. AZITHROMAX [Concomitant]
     Dosage: UNK UKN, UNK

REACTIONS (4)
  - Toxicity to various agents [Unknown]
  - Vasoconstriction [Recovering/Resolving]
  - Drug level increased [None]
  - Renal failure acute [Recovering/Resolving]
